FAERS Safety Report 19261399 (Version 2)
Quarter: 2021Q2

REPORT INFORMATION
  Report Type: Report from Study
  Country: ES (occurrence: ES)
  Receive Date: 20210515
  Receipt Date: 20210526
  Transmission Date: 20210717
  Serious: Yes (Death, Other)
  Sender: FDA-Public Use
  Company Number: ES-AMGEN-ESPCT2021072822

PATIENT
  Age: 59 Year
  Sex: Male
  Weight: 68.9 kg

DRUGS (21)
  1. 5 FU [Suspect]
     Active Substance: FLUOROURACIL
     Indication: COLORECTAL CANCER METASTATIC
     Dosage: 696 MILLIGRAM, Q2WK
     Route: 040
     Dates: start: 20200226
  2. 5 FU [Suspect]
     Active Substance: FLUOROURACIL
     Dosage: 4356 MILLIGRAM, Q2WK
     Route: 041
     Dates: end: 20210127
  3. 5 FU [Suspect]
     Active Substance: FLUOROURACIL
     Dosage: 742 MILLIGRAM, Q2WK
     Route: 040
     Dates: start: 20210208
  4. LEUCOVORIN [FOLINIC ACID] [Suspect]
     Active Substance: LEUCOVORIN
     Dosage: 742 MILLIGRAM, Q2WK
     Route: 042
     Dates: start: 20210208, end: 20210419
  5. LORAZEPAM. [Concomitant]
     Active Substance: LORAZEPAM
     Indication: ANXIETY
     Dosage: 1 MILLIGRAM, QD
     Route: 048
     Dates: start: 20201008
  6. 5 FU [Suspect]
     Active Substance: FLUOROURACIL
     Dosage: 446 MILLIGRAM, Q2WK
     Route: 040
     Dates: end: 20210419
  7. 5 FU [Suspect]
     Active Substance: FLUOROURACIL
     Dosage: 2968 MILLIGRAM, Q2WK
     Route: 041
     Dates: end: 20210419
  8. ONDANSETRON [Concomitant]
     Active Substance: ONDANSETRON
     Indication: PROPHYLAXIS OF NAUSEA AND VOMITING
     Dosage: 8 MILLIGRAM, TID
     Route: 048
     Dates: start: 20200214
  9. OXALIPLATIN. [Suspect]
     Active Substance: OXALIPLATIN
     Indication: COLORECTAL CANCER METASTATIC
     Dosage: 148 MILLIGRAM, Q2WK
     Route: 042
     Dates: start: 20200226, end: 20200615
  10. 5 FU [Suspect]
     Active Substance: FLUOROURACIL
     Dosage: 4178 MILLIGRAM, Q2WK
     Route: 041
     Dates: start: 20200226
  11. 5 FU [Suspect]
     Active Substance: FLUOROURACIL
     Dosage: 726 MILLIGRAM, Q2WK
     Route: 040
     Dates: end: 20210125
  12. DEXAMETHASONE. [Concomitant]
     Active Substance: DEXAMETHASONE
     Indication: PROPHYLAXIS OF NAUSEA AND VOMITING
     Dosage: 8 MILLIGRAM, QD
     Route: 048
     Dates: start: 20200214
  13. BEVACIZUMAB. [Suspect]
     Active Substance: BEVACIZUMAB
     Dosage: 342 MILLIGRAM, Q2WK
     Route: 042
     Dates: end: 20210125
  14. BEVACIZUMAB. [Suspect]
     Active Substance: BEVACIZUMAB
     Indication: COLORECTAL CANCER METASTATIC
     Dosage: 310 MILLIGRAM, Q2WK
     Route: 042
     Dates: start: 20200226
  15. LEUCOVORIN [FOLINIC ACID] [Suspect]
     Active Substance: LEUCOVORIN
     Dosage: 726 MILLIGRAM, Q2WK
     Route: 042
     Dates: end: 20210125
  16. 5 FU [Suspect]
     Active Substance: FLUOROURACIL
     Dosage: 4452 MILLIGRAM, Q2WK
     Route: 041
     Dates: start: 20210208
  17. LEUCOVORIN [FOLINIC ACID] [Suspect]
     Active Substance: LEUCOVORIN
     Indication: COLORECTAL CANCER METASTATIC
     Dosage: 696 MILLIGRAM, Q2WK
     Route: 042
     Dates: start: 20200226
  18. IRINOTECAN [Suspect]
     Active Substance: IRINOTECAN
     Indication: COLORECTAL CANCER METASTATIC
     Dosage: 334 MILLIGRAM, Q2WK
     Route: 042
     Dates: start: 20210208
  19. IRINOTECAN [Suspect]
     Active Substance: IRINOTECAN
     Dosage: 278 MILLIGRAM, Q2WK
     Route: 042
     Dates: end: 20210419
  20. PANITUMUMAB [Suspect]
     Active Substance: PANITUMUMAB
     Indication: COLORECTAL CANCER METASTATIC
     Dosage: 432 MILLIGRAM, Q2WK
     Route: 042
     Dates: start: 20210208, end: 20210419
  21. DOXICYCLIN [Concomitant]
     Active Substance: DOXYCYCLINE
     Indication: ERYTHEMA
     Dosage: 100 MILLIGRAM, BID
     Route: 048
     Dates: start: 20210208

REACTIONS (1)
  - Cardio-respiratory arrest [Fatal]

NARRATIVE: CASE EVENT DATE: 20210501
